FAERS Safety Report 4707448-6 (Version None)
Quarter: 2005Q3

REPORT INFORMATION
  Report Type: 
  Country: None (occurrence: None)
  Receive Date: 20050706
  Receipt Date: 20050629
  Transmission Date: 20060218
  Serious: Yes (Other)
  Sender: FDA-Public Use
  Company Number: 200516054GDDC

PATIENT
  Sex: 0

DRUGS (1)
  1. DOCETAXEL [Suspect]
     Dosage: DOSE: UNK
     Route: 042

REACTIONS (1)
  - HYPERGLYCAEMIA [None]
